FAERS Safety Report 5760316-3 (Version None)
Quarter: 2008Q2

REPORT INFORMATION
  Report Type: 
  Country: None (occurrence: None)
  Receive Date: 20080605
  Receipt Date: 20080528
  Transmission Date: 20081010
  Serious: Yes (Other)
  Sender: FDA-Public Use
  Company Number: SE-PFIZER INC-2006150907

PATIENT
  Sex: Female

DRUGS (4)
  1. GENOTROPIN [Suspect]
     Indication: HYPOPITUITARISM
     Dosage: DAILY DOSE:.5MG
     Route: 058
     Dates: start: 19960403, end: 20070629
  2. HYDROCORTISONE [Concomitant]
  3. CORTISONE ACETATE [Concomitant]
     Dates: start: 20021017, end: 20030508
  4. LEVOTHYROXINE SODIUM [Concomitant]
     Dosage: DAILY DOSE:50MCG
     Dates: start: 20040927, end: 20040927

REACTIONS (1)
  - PITUITARY TUMOUR RECURRENT [None]
